FAERS Safety Report 7684272-6 (Version None)
Quarter: 2011Q3

REPORT INFORMATION
  Report Type: 
  Country: None (occurrence: None)
  Receive Date: 20110815
  Receipt Date: 20110809
  Transmission Date: 20111222
  Serious: Yes (Death, Hospitalization)
  Sender: FDA-Public Use
  Company Number: DE-CELGENEUS-062-AB007-11070015

PATIENT
  Age: 81 Year
  Sex: Female
  Weight: 69.5 kg

DRUGS (8)
  1. SIMVASTATIN [Concomitant]
     Dosage: 20 MILLIGRAM
     Route: 048
     Dates: start: 20060101, end: 20110727
  2. ABRAXANE [Suspect]
     Route: 041
     Dates: start: 20110614, end: 20110627
  3. LEVOTHYROXINE SODIUM [Concomitant]
     Indication: HYPERTHYROIDISM
     Dosage: 125 MILLIGRAM
     Route: 048
     Dates: start: 20060101, end: 20110727
  4. PRAMIPEXOLE DIHYDROCHLORIDE [Concomitant]
     Dosage: .9 MILLIGRAM
     Route: 048
     Dates: start: 20060101, end: 20110727
  5. BROMAZEPAM [Concomitant]
     Dosage: 8 MILLIGRAM
     Route: 048
     Dates: end: 20110727
  6. BROMAZEPAM [Concomitant]
     Indication: AGITATION
  7. ABRAXANE [Suspect]
     Indication: METASTATIC MALIGNANT MELANOMA
     Route: 041
     Dates: start: 20110503
  8. ABRAXANE [Suspect]
     Route: 041
     Dates: end: 20110727

REACTIONS (1)
  - METASTASES TO CENTRAL NERVOUS SYSTEM [None]
